FAERS Safety Report 8371953-4 (Version None)
Quarter: 2012Q2

REPORT INFORMATION
  Report Type: 
  Country: None (occurrence: None)
  Receive Date: 20120518
  Receipt Date: 20120509
  Transmission Date: 20120825
  Serious: Yes (Hospitalization)
  Sender: FDA-Public Use
  Company Number: US-MERCK-1205USA02509

PATIENT
  Age: 75 Year
  Sex: Female

DRUGS (12)
  1. OMEGA-3 MARINE TRIGLYCERIDES [Concomitant]
     Route: 065
  2. DONEPEZIL HYDROCHLORIDE [Concomitant]
     Route: 065
  3. MIRAPEX [Concomitant]
     Route: 065
  4. LEXAPRO [Concomitant]
     Route: 065
  5. FOSAMAX [Suspect]
     Route: 048
  6. TEMAZEP [Concomitant]
     Route: 065
  7. IRON (UNSPECIFIED) [Concomitant]
     Route: 065
  8. THEOLAIR [Concomitant]
     Route: 065
  9. OXYCODONE [Concomitant]
     Route: 065
  10. GEMFIBROZIL [Concomitant]
     Route: 065
  11. XANAX [Concomitant]
     Route: 065
  12. LEVOTHYROXINE SODIUM [Concomitant]
     Route: 065

REACTIONS (13)
  - HIP FRACTURE [None]
  - SPINAL DEFORMITY [None]
  - MALAISE [None]
  - BACK PAIN [None]
  - MULTIPLE FRACTURES [None]
  - MOBILITY DECREASED [None]
  - INADEQUATE ANALGESIA [None]
  - SPINAL FRACTURE [None]
  - PAIN IN EXTREMITY [None]
  - DRUG DOSE OMISSION [None]
  - ADVERSE EVENT [None]
  - OSTEOPOROSIS [None]
  - BONE DISORDER [None]
